FAERS Safety Report 7941060-0 (Version None)
Quarter: 2011Q4

REPORT INFORMATION
  Report Type: 
  Country: None (occurrence: None)
  Receive Date: 20111128
  Receipt Date: 20111116
  Transmission Date: 20120403
  Serious: Yes (Hospitalization)
  Sender: FDA-Public Use
  Company Number: JP-PFIZER INC-2011239178

PATIENT
  Age: 69 Year
  Sex: Female
  Weight: 42.5 kg

DRUGS (8)
  1. CRIZOTINIB [Suspect]
     Indication: NON-SMALL CELL LUNG CANCER
     Dosage: 500 MG, 1X/DAY
     Route: 048
     Dates: start: 20110909
  2. MUCOSTA [Concomitant]
     Indication: PROPHYLAXIS
     Dosage: 300 MG, 1X/DAY
     Route: 048
     Dates: start: 20110120
  3. PROCHLORPERAZINE [Concomitant]
     Indication: NAUSEA
     Dosage: 10 MG, 1X/DAY
     Route: 048
     Dates: start: 20110911
  4. LOXOPROFEN [Concomitant]
     Indication: BACK PAIN
     Dosage: 180 MG, 1X/DAY
     Route: 048
     Dates: start: 20110120
  5. MAGMITT [Concomitant]
     Indication: CONSTIPATION
     Dosage: 990 MG, 1X/DAY
     Route: 048
     Dates: start: 20110915
  6. PANTOSIN [Concomitant]
     Indication: CONSTIPATION
     Dosage: 3 G, 1X/DAY
     Route: 048
     Dates: start: 20110920
  7. VOLTAREN [Concomitant]
     Indication: BACK PAIN
     Dosage: 25 MG, AS NEEDED
     Route: 054
     Dates: start: 20110120
  8. LAXOBERON [Concomitant]
     Indication: CONSTIPATION
     Dosage: 5 DROPS, 1X/DAY
     Route: 048
     Dates: start: 20110923

REACTIONS (1)
  - SPINAL COMPRESSION FRACTURE [None]
